FAERS Safety Report 8064762-7 (Version None)
Quarter: 2012Q1

REPORT INFORMATION
  Report Type: 
  Country: None (occurrence: None)
  Receive Date: 20120124
  Receipt Date: 20120113
  Transmission Date: 20120608
  Serious: Yes (Other)
  Sender: FDA-Public Use
  Company Number: CH-BRISTOL-MYERS SQUIBB COMPANY-16355604

PATIENT
  Sex: Male

DRUGS (4)
  1. IRINOTECAN HCL [Suspect]
  2. ERBITUX [Suspect]
     Dosage: LAST ERBITUX INFUSION:21DEC2011.
  3. FLUOROURACIL [Suspect]
  4. LEUCOVORIN CALCIUM [Suspect]

REACTIONS (1)
  - VASCULITIS [None]
